FAERS Safety Report 13772247 (Version 3)
Quarter: 2017Q4

REPORT INFORMATION
  Report Type: Spontaneous
  Country: US (occurrence: US)
  Receive Date: 20170720
  Receipt Date: 20171213
  Transmission Date: 20180320
  Serious: Yes (Other)
  Sender: FDA-Public Use
  Company Number: US-PFIZER INC-2017310092

PATIENT
  Age: 35 Year
  Sex: Female

DRUGS (3)
  1. METHOTREXATE SODIUM. [Suspect]
     Active Substance: METHOTREXATE SODIUM
     Indication: HODGKIN^S DISEASE
     Dosage: UNK
  2. BRENTUXIMAB VEDOTIN [Suspect]
     Active Substance: BRENTUXIMAB VEDOTIN
     Indication: HODGKIN^S DISEASE
     Dosage: UNK
  3. INSULIN GROWTH FACTOR (INSULIN-LIKE GROWTH FACTOR BINDING PROTEIN-3) [Suspect]
     Active Substance: RINFABATE
     Indication: HODGKIN^S DISEASE
     Dosage: UNK

REACTIONS (1)
  - Sarcoidosis [Unknown]
